FAERS Safety Report 8114636-8 (Version None)
Quarter: 2012Q1

REPORT INFORMATION
  Report Type: 
  Country: None (occurrence: None)
  Receive Date: 20120206
  Receipt Date: 20120127
  Transmission Date: 20120608
  Serious: Yes (Hospitalization, Other)
  Sender: FDA-Public Use
  Company Number: US-PFIZER INC-2012002973

PATIENT
  Sex: Male

DRUGS (1)
  1. SUTENT [Suspect]
     Indication: METASTATIC RENAL CELL CARCINOMA
     Dosage: 50 MG, DAILY
     Route: 048
     Dates: start: 20111018, end: 20111226

REACTIONS (14)
  - MOUTH ULCERATION [None]
  - ODYNOPHAGIA [None]
  - ABDOMINAL DISCOMFORT [None]
  - CONSTIPATION [None]
  - AORTIC ARTERIOSCLEROSIS [None]
  - RASH [None]
  - BLOOD PRESSURE FLUCTUATION [None]
  - GASTROOESOPHAGEAL REFLUX DISEASE [None]
  - HYPERTENSION [None]
  - TOXICITY TO VARIOUS AGENTS [None]
  - WAIST CIRCUMFERENCE INCREASED [None]
  - OEDEMA PERIPHERAL [None]
  - WEIGHT INCREASED [None]
  - EYE HAEMORRHAGE [None]
